FAERS Safety Report 6789043-0 (Version None)
Quarter: 2010Q2

REPORT INFORMATION
  Report Type: 
  Country: None (occurrence: None)
  Receive Date: 20100623
  Receipt Date: 20080825
  Transmission Date: 20101027
  Serious: No
  Sender: FDA-Public Use
  Company Number: US-PFIZER INC-2008042550

PATIENT
  Sex: Female
  Weight: 75 kg

DRUGS (4)
  1. XALATAN [Suspect]
     Indication: GLAUCOMA
     Dates: start: 20040101, end: 20080510
  2. ACIPHEX [Concomitant]
  3. AVAPRO [Concomitant]
  4. PROPRANOLOL HYDROCHLORIDE [Concomitant]

REACTIONS (1)
  - CHROMATOPSIA [None]
